FAERS Safety Report 22528091 (Version 2)
Quarter: 2023Q2

REPORT INFORMATION
  Report Type: Spontaneous
  Country: US (occurrence: US)
  Receive Date: 20230607
  Receipt Date: 20230612
  Transmission Date: 20230722
  Serious: No
  Sender: FDA-Public Use
  Company Number: US-009507513-2305USA007096

PATIENT
  Age: 69 Year
  Sex: Female

DRUGS (3)
  1. MOLNUPIRAVIR [Suspect]
     Active Substance: MOLNUPIRAVIR
     Indication: COVID-19 treatment
     Dosage: 1 DOSAGE FORM, BID; TAKES A DOSE EVERY 12 HOURS AROUND OR BETWEEN 07:00 AND 07:30
     Route: 048
     Dates: start: 20221220
  2. DUPIXENT [Suspect]
     Active Substance: DUPILUMAB
     Indication: Asthma
     Dosage: 600 MILLIGRAM, ONCE; SHE INJECTED IT INTO HER ABDOMEN VIA PRE-FILLED PEN
     Route: 058
     Dates: start: 20221212, end: 20221212
  3. DUPIXENT [Suspect]
     Active Substance: DUPILUMAB
     Dosage: 300 MILLIGRAM, QOW; VIA PRE-FILLED PEN AND INJECTED IT INTO HER ABDOMEN
     Route: 058
     Dates: start: 202212

REACTIONS (9)
  - Injection site rash [Not Recovered/Not Resolved]
  - Injection site swelling [Not Recovered/Not Resolved]
  - Injection site mass [Not Recovered/Not Resolved]
  - Injection site erythema [Not Recovered/Not Resolved]
  - Injection site pain [Not Recovered/Not Resolved]
  - Dry skin [Not Recovered/Not Resolved]
  - Alopecia [Not Recovered/Not Resolved]
  - Fear [Not Recovered/Not Resolved]
  - Product prescribing issue [Unknown]

NARRATIVE: CASE EVENT DATE: 20221201
